FAERS Safety Report 20319518 (Version 1)
Quarter: 2022Q1

REPORT INFORMATION
  Report Type: Report from Study
  Country: CO (occurrence: CO)
  Receive Date: 20220110
  Receipt Date: 20220110
  Transmission Date: 20220423
  Serious: Yes (Other)
  Sender: FDA-Public Use
  Company Number: CO-ABBVIE-22K-036-4226759-00

PATIENT
  Sex: Male

DRUGS (2)
  1. ZEMPLAR [Suspect]
     Active Substance: PARICALCITOL
     Indication: Hyperparathyroidism secondary
     Dosage: POST-DIALYSIS
     Route: 042
     Dates: start: 20200730, end: 20211202
  2. ZEMPLAR [Suspect]
     Active Substance: PARICALCITOL
     Indication: Chronic kidney disease

REACTIONS (4)
  - Vision blurred [Recovering/Resolving]
  - Glaucoma [Recovering/Resolving]
  - Eye disorder [Recovering/Resolving]
  - Anaemia [Recovering/Resolving]

NARRATIVE: CASE EVENT DATE: 20210101
